FAERS Safety Report 11845535 (Version 2)
Quarter: 2016Q1

REPORT INFORMATION
  Report Type: Spontaneous
  Country: JP (occurrence: JP)
  Receive Date: 20151217
  Receipt Date: 20160107
  Transmission Date: 20160526
  Serious: Yes (Hospitalization, Other)
  Sender: FDA-Public Use
  Company Number: JP-PFIZER INC-2015419538

PATIENT
  Age: 69 Year
  Sex: Female
  Weight: 51 kg

DRUGS (13)
  1. RABEPRAZOLE NA SAWAI [Concomitant]
     Active Substance: RABEPRAZOLE SODIUM
     Dosage: 10 MG, 1X/DAY, AFTER BREAKFAST
     Route: 048
     Dates: start: 20130312
  2. REBAMIPIDE [Concomitant]
     Active Substance: REBAMIPIDE
     Indication: PAIN
     Dosage: 100 MG, AS NEEDED
     Route: 048
     Dates: start: 20150915
  3. JANUVIA [Concomitant]
     Active Substance: SITAGLIPTIN PHOSPHATE
     Dosage: 50 MG, 1X/DAY, AFTER BREAKFAST
     Route: 048
     Dates: start: 20130724
  4. LOXONIN [Concomitant]
     Active Substance: LOXOPROFEN SODIUM
     Indication: PAIN
     Dosage: 60 MG, AS NEEDED
     Route: 048
     Dates: start: 20150915
  5. AMLODIPINE EMEC [Concomitant]
     Active Substance: AMLODIPINE BESYLATE
     Dosage: 10 MG, 1X/DAY, AFTER BREAKFAST
     Route: 048
     Dates: start: 20110210
  6. RIMATIL [Concomitant]
     Active Substance: BUCILLAMINE
     Dosage: 100 MG, 2X/DAY, AFTER BREAKFAST AND SUPPER,
     Route: 048
     Dates: start: 20131127
  7. ACTONEL [Concomitant]
     Active Substance: RISEDRONATE SODIUM
     Dosage: 75 MG, MONTHLY AT THE TIME OF AWAKENING
     Route: 048
     Dates: start: 20150331
  8. TRAMAL [Suspect]
     Active Substance: TRAMADOL
     Indication: BACK PAIN
     Dosage: 25 MG, 1X/DAY
     Route: 048
     Dates: start: 20151124, end: 20151125
  9. ELIETEN [Concomitant]
     Active Substance: METOCLOPRAMIDE
     Indication: NAUSEA
     Dosage: 5 MG, 2X/DAY BEFORE BREAKFAST AND SUPPER
     Route: 048
     Dates: start: 20151124, end: 20151125
  10. ATORVASTATIN CALCIUM. [Concomitant]
     Active Substance: ATORVASTATIN CALCIUM
     Dosage: 5 MG, 1X/DAY, AFTER SUPPER
     Route: 048
     Dates: start: 20110210
  11. MAGMITT [Concomitant]
     Active Substance: MAGNESIUM OXIDE
     Indication: CONSTIPATION
     Dosage: 500 MG, 3X/DAY AFTER EACH MEAL
     Route: 048
     Dates: start: 20151124
  12. ZOLPIDEM TARTRATE. [Concomitant]
     Active Substance: ZOLPIDEM TARTRATE
     Indication: INSOMNIA
     Dosage: 5 MG, AS NEEDED
     Route: 048
     Dates: start: 20130705
  13. FUROSEMIDE TEVA [Concomitant]
     Active Substance: FUROSEMIDE
     Dosage: 10 MG, 1X/DAY, AFTER BREAKFAST
     Route: 048
     Dates: start: 20121216

REACTIONS (4)
  - Delirium [Recovering/Resolving]
  - Back pain [Unknown]
  - Nausea [Recovering/Resolving]
  - Decreased appetite [Recovering/Resolving]

NARRATIVE: CASE EVENT DATE: 20151125
